FAERS Safety Report 6484146-2 (Version None)
Quarter: 2009Q4

REPORT INFORMATION
  Report Type: 
  Country: None (occurrence: None)
  Receive Date: 20091123
  Receipt Date: 20091009
  Transmission Date: 20100525
  Serious: No
  Sender: FDA-Public Use
  Company Number: 8052241

PATIENT
  Sex: Male

DRUGS (2)
  1. CIMZIA [Suspect]
     Dosage: 400 MG /M SC
     Route: 058
     Dates: start: 20090904, end: 20090916
  2. CIMZIA [Suspect]
     Dosage: 400 MG ONCE SC
     Route: 058
     Dates: start: 20091001, end: 20091001

REACTIONS (2)
  - ANORECTAL DISCOMFORT [None]
  - RECTAL HAEMORRHAGE [None]
